FAERS Safety Report 6081287-9 (Version None)
Quarter: 2009Q1

REPORT INFORMATION
  Report Type: 
  Country: None (occurrence: None)
  Receive Date: 20090218
  Receipt Date: 20090210
  Transmission Date: 20090719
  Serious: Yes (Life-Threatening, Hospitalization, Disabling, Other)
  Sender: FDA-Public Use
  Company Number: DE-RANBAXY-2009RR-21742

PATIENT
  Sex: Female
  Weight: 69 kg

DRUGS (5)
  1. DOXYCYCLINE TABLETS [Suspect]
     Indication: NASOPHARYNGITIS
     Dosage: 1 DF, QD
     Route: 048
     Dates: start: 20081017, end: 20081025
  2. DOXYCYCLINE TABLETS [Suspect]
     Dosage: 9 DF, UNK
     Route: 048
     Dates: start: 20081017, end: 20081025
  3. GARDASIL [Suspect]
     Indication: IMMUNISATION
     Dosage: 120 UG, QD
     Route: 030
     Dates: start: 20081023, end: 20081023
  4. BELARA [Concomitant]
     Indication: ORAL CONTRACEPTION
     Dosage: 1 DF, QD
     Route: 048
     Dates: start: 20070101
  5. INVEGA [Concomitant]
     Indication: SCHIZOPHRENIA
     Dosage: 3 MG, QD
     Route: 048
     Dates: start: 20050101, end: 20081120

REACTIONS (2)
  - HAEMOLYTIC URAEMIC SYNDROME [None]
  - RENAL IMPAIRMENT [None]
